FAERS Safety Report 20208936 (Version 1)
Quarter: 2021Q4

REPORT INFORMATION
  Report Type: Spontaneous
  Country: JP (occurrence: JP)
  Receive Date: 20211220
  Receipt Date: 20211220
  Transmission Date: 20220304
  Serious: Yes (Hospitalization, Other)
  Sender: FDA-Public Use
  Company Number: JP-MSD-M2021-30041

PATIENT
  Age: 78 Year
  Sex: Female

DRUGS (1)
  1. KEYTRUDA [Suspect]
     Active Substance: PEMBROLIZUMAB
     Indication: Non-small cell lung cancer
     Dosage: 200 MILLIGRAM, Q3W
     Route: 041
     Dates: start: 20211124, end: 20211124

REACTIONS (5)
  - Kidney enlargement [Unknown]
  - Glycosuria [Unknown]
  - Renal tubular disorder [Unknown]
  - Blood creatinine increased [Unknown]
  - Proteinuria [Unknown]

NARRATIVE: CASE EVENT DATE: 20211201
